FAERS Safety Report 7638355-7 (Version None)
Quarter: 2011Q3

REPORT INFORMATION
  Report Type: 
  Country: None (occurrence: None)
  Receive Date: 20110720
  Receipt Date: 20110706
  Transmission Date: 20111222
  Serious: Yes (Death, Other)
  Sender: FDA-Public Use
  Company Number: 2011AP001353

PATIENT
  Age: 66 Year
  Sex: Female

DRUGS (4)
  1. ASPIRIN [Suspect]
     Indication: PRODUCT USED FOR UNKNOWN INDICATION
  2. CITALOPRAM HYDROBROMIDE [Suspect]
     Indication: PRODUCT USED FOR UNKNOWN INDICATION
     Dosage: 20 MG
  3. PRIADEL /00033702 (LITHIUM CARBONATE) [Suspect]
     Indication: PRODUCT USED FOR UNKNOWN INDICATION
     Dosage: 600 MG
  4. ZISPIN (MIRTAZAPINE)15 MG, 30 MG, 45 MG [Suspect]
     Indication: PRODUCT USED FOR UNKNOWN INDICATION
     Dosage: 45 MG,

REACTIONS (9)
  - COMPLETED SUICIDE [None]
  - CONDITION AGGRAVATED [None]
  - CONFUSIONAL STATE [None]
  - OVERDOSE [None]
  - ASPHYXIA [None]
  - AGITATION [None]
  - ANXIETY [None]
  - HISTRIONIC PERSONALITY DISORDER [None]
  - ACTIVITIES OF DAILY LIVING IMPAIRED [None]
